FAERS Safety Report 9822619 (Version 6)
Quarter: 2014Q2

REPORT INFORMATION
  Report Type: Spontaneous
  Country: US (occurrence: US)
  Receive Date: 20140116
  Receipt Date: 20140423
  Transmission Date: 20141212
  Serious: Yes (Hospitalization, Other)
  Sender: FDA-Public Use
  Company Number: US-BIOGENIDEC-2014BI002706

PATIENT
  Age: 38 Year
  Sex: Male

DRUGS (2)
  1. TYSABRI [Suspect]
     Indication: MULTIPLE SCLEROSIS
     Route: 042
     Dates: start: 20110614
  2. DILANTIN [Concomitant]

REACTIONS (7)
  - Mobility decreased [Not Recovered/Not Resolved]
  - Toxicity to various agents [Unknown]
  - Cerebrovascular accident [Unknown]
  - Multiple sclerosis relapse [Recovered/Resolved]
  - Complex partial seizures [Not Recovered/Not Resolved]
  - White blood cell count increased [Unknown]
  - Hypoaesthesia [Recovered/Resolved]
